FAERS Safety Report 5192061-X (Version None)
Quarter: 2006Q4

REPORT INFORMATION
  Report Type: 
  Country: None (occurrence: None)
  Receive Date: 20061221
  Receipt Date: 20061221
  Transmission Date: 20070319
  Serious: Yes (Hospitalization)
  Sender: FDA-Public Use
  Company Number: None

PATIENT
  Age: 61 Year
  Sex: Female
  Weight: 76.2043 kg

DRUGS (2)
  1. ANZEMET [Suspect]
     Indication: NAUSEA
     Dosage: IVP X 1
     Route: 042
     Dates: start: 20060913
  2. ANZEMET [Suspect]
     Indication: VOMITING
     Dosage: IVP X 1
     Route: 042
     Dates: start: 20060913

REACTIONS (5)
  - ABDOMINAL PAIN UPPER [None]
  - BLOOD PRESSURE DECREASED [None]
  - HAEMATEMESIS [None]
  - HYPERHIDROSIS [None]
  - NAUSEA [None]
